APPROVED DRUG PRODUCT: AMOXICILLIN
Active Ingredient: AMOXICILLIN
Strength: 250MG
Dosage Form/Route: TABLET, CHEWABLE;ORAL
Application: A064031 | Product #002
Applicant: TEVA PHARMACEUTICALS USA INC
Approved: Dec 19, 1996 | RLD: No | RS: No | Type: DISCN